FAERS Safety Report 22600243 (Version 1)
Quarter: 2023Q2

REPORT INFORMATION
  Report Type: Spontaneous
  Country: ES (occurrence: ES)
  Receive Date: 20230614
  Receipt Date: 20230614
  Transmission Date: 20230721
  Serious: Yes (Other)
  Sender: FDA-Public Use
  Company Number: ES-JNJFOC-20230613572

PATIENT

DRUGS (1)
  1. IBRUTINIB [Suspect]
     Active Substance: IBRUTINIB
     Indication: Mantle cell lymphoma
     Route: 048

REACTIONS (13)
  - Pneumonia [Unknown]
  - Haemorrhage [Unknown]
  - Urinary tract infection [Unknown]
  - Thrombocytopenia [Unknown]
  - Neutropenia [Unknown]
  - Oedema [Unknown]
  - Cardiotoxicity [Unknown]
  - Nephropathy toxic [Unknown]
  - Skin toxicity [Unknown]
  - Diarrhoea [Unknown]
  - Infection [Unknown]
  - Anaemia [Unknown]
  - Neurotoxicity [Unknown]
